FAERS Safety Report 8460444-8 (Version None)
Quarter: 2012Q2

REPORT INFORMATION
  Report Type: 
  Country: None (occurrence: None)
  Receive Date: 20120622
  Receipt Date: 20120614
  Transmission Date: 20120825
  Serious: Yes (Other)
  Sender: FDA-Public Use
  Company Number: CHPA2012US012758

PATIENT
  Age: 48 Year
  Sex: Female

DRUGS (2)
  1. VOLTAREN [Suspect]
     Indication: RHEUMATOID ARTHRITIS
     Dosage: 2 G, TID
     Route: 061
     Dates: start: 20080101, end: 20110101
  2. TRILAFON [Suspect]
     Indication: DEPRESSION

REACTIONS (6)
  - DEPRESSION [None]
  - OFF LABEL USE [None]
  - DRUG ADMINISTERED AT INAPPROPRIATE SITE [None]
  - DYSPNOEA [None]
  - HERNIA [None]
  - THERAPEUTIC RESPONSE UNEXPECTED [None]
